FAERS Safety Report 8180913-8 (Version None)
Quarter: 2012Q1

REPORT INFORMATION
  Report Type: 
  Country: None (occurrence: None)
  Receive Date: 20120302
  Receipt Date: 20120227
  Transmission Date: 20120608
  Serious: Yes (Life-Threatening, Hospitalization)
  Sender: FDA-Public Use
  Company Number: US-ABBOTT-12P-163-0909251-00

PATIENT
  Sex: Male
  Weight: 96.248 kg

DRUGS (26)
  1. SERTRALINE HYDROCHLORIDE [Concomitant]
     Indication: DEPRESSION
  2. BYETTA [Concomitant]
     Indication: DIABETES MELLITUS
  3. LOPRESSOR [Concomitant]
     Indication: PRODUCT USED FOR UNKNOWN INDICATION
  4. ASPIRIN [Concomitant]
     Indication: PRODUCT USED FOR UNKNOWN INDICATION
  5. BENICAR [Concomitant]
     Indication: PRODUCT USED FOR UNKNOWN INDICATION
  6. CALCIUM [Concomitant]
     Indication: MINERAL SUPPLEMENTATION
  7. TYLENOL W/ CODEINE NO. 4 [Concomitant]
     Indication: BACK PAIN
  8. ATENOLOL [Concomitant]
     Indication: PRODUCT USED FOR UNKNOWN INDICATION
  9. AVARA [Concomitant]
     Indication: PRODUCT USED FOR UNKNOWN INDICATION
  10. OMEPRAZOLE [Concomitant]
     Indication: GASTRIC DISORDER
  11. SPIRIVA [Concomitant]
     Indication: PRODUCT USED FOR UNKNOWN INDICATION
  12. HUMIRA [Suspect]
     Indication: RHEUMATOID ARTHRITIS
  13. MULTI-VITAMIN [Concomitant]
     Indication: VITAMIN SUPPLEMENTATION
  14. DIOVAN [Concomitant]
     Indication: PRODUCT USED FOR UNKNOWN INDICATION
  15. LEVEMIR [Concomitant]
     Indication: DIABETES MELLITUS
  16. METFORMIN HCL [Concomitant]
     Indication: DIABETES MELLITUS
  17. FLOMAX [Concomitant]
     Indication: BLADDER DISORDER
  18. COLACE [Concomitant]
     Indication: PRODUCT USED FOR UNKNOWN INDICATION
  19. INSULIN [Concomitant]
     Indication: DIABETES MELLITUS
  20. PREDNISONE TAB [Concomitant]
     Indication: PRODUCT USED FOR UNKNOWN INDICATION
  21. NIASPAN [Concomitant]
     Indication: PRODUCT USED FOR UNKNOWN INDICATION
  22. BUMEX [Concomitant]
     Indication: PRODUCT USED FOR UNKNOWN INDICATION
  23. MIRALAX [Concomitant]
     Indication: CONSTIPATION
  24. FISH OIL [Concomitant]
     Indication: SUPPLEMENTATION THERAPY
  25. CRESTOR [Concomitant]
     Indication: PRODUCT USED FOR UNKNOWN INDICATION
  26. VENTOLIN [Concomitant]
     Indication: PRODUCT USED FOR UNKNOWN INDICATION

REACTIONS (9)
  - BLOOD MAGNESIUM DECREASED [None]
  - POLLAKIURIA [None]
  - CYSTITIS [None]
  - APHASIA [None]
  - URINE FLOW DECREASED [None]
  - DYSPNOEA [None]
  - APNOEA [None]
  - URINARY RETENTION [None]
  - CARDIAC FAILURE CONGESTIVE [None]
